FAERS Safety Report 6715929-9 (Version None)
Quarter: 2010Q2

REPORT INFORMATION
  Report Type: 
  Country: None (occurrence: None)
  Receive Date: 20100507
  Receipt Date: 20100504
  Transmission Date: 20101027
  Serious: Yes (Death, Hospitalization, Other)
  Sender: FDA-Public Use
  Company Number: PHHY2010ES28453

PATIENT
  Age: 54 Year
  Sex: Male

DRUGS (6)
  1. VOLTAREN [Suspect]
     Indication: PAIN
     Dosage: UNK
     Dates: start: 20090826
  2. NEBIVOLOL HCL [Interacting]
     Indication: HYPERTENSION
     Dosage: UNK
     Dates: start: 20090204
  3. COLCHIMAX [Interacting]
     Indication: GOUT
     Dosage: UNK
     Dates: start: 20090826, end: 20090831
  4. CELLCEPT [Interacting]
     Indication: RENAL TRANSPLANT
     Dosage: UNK
  5. FUROSEMIDE [Interacting]
     Indication: HYPERTENSION
     Dosage: UNK
     Dates: start: 20090721, end: 20090901
  6. TACROLIMUS [Interacting]
     Indication: RENAL TRANSPLANT

REACTIONS (6)
  - DRUG INTERACTION [None]
  - NEPHROPATHY [None]
  - RENAL ATROPHY [None]
  - RENAL FAILURE ACUTE [None]
  - RENAL IMPAIRMENT [None]
  - SPLENOMEGALY [None]
